FAERS Safety Report 6063328-8 (Version None)
Quarter: 2009Q1

REPORT INFORMATION
  Report Type: 
  Country: None (occurrence: None)
  Receive Date: 20090203
  Receipt Date: 20090122
  Transmission Date: 20090719
  Serious: Yes (Hospitalization)
  Sender: FDA-Public Use
  Company Number: FR-PFIZER INC-2009160443

PATIENT

DRUGS (4)
  1. SOLU-MEDROL [Suspect]
     Route: 042
     Dates: start: 20080917, end: 20081008
  2. LYMPHOGLOBULINE [Suspect]
     Route: 042
     Dates: start: 20080917, end: 20080921
  3. SOLUPRED [Suspect]
     Route: 048
     Dates: start: 20081009, end: 20081028
  4. NEORAL [Suspect]
     Route: 048
     Dates: start: 20080922, end: 20081030

REACTIONS (1)
  - STATUS EPILEPTICUS [None]
